FAERS Safety Report 7360217-3 (Version None)
Quarter: 2011Q1

REPORT INFORMATION
  Report Type: 
  Country: None (occurrence: None)
  Receive Date: 20110307
  Receipt Date: 20110222
  Transmission Date: 20110831
  Serious: Yes (Hospitalization)
  Sender: FDA-Public Use
  Company Number: 2011AP000324

PATIENT
  Age: 66 Year

DRUGS (2)
  1. BENDROFLUMETHIAZIDE (BENDROFLUMETHIAZIDE) [Concomitant]
  2. AMLODIPINE BESYLATE [Suspect]
     Indication: PRODUCT USED FOR UNKNOWN INDICATION

REACTIONS (1)
  - PORTAL VEIN THROMBOSIS [None]
